FAERS Safety Report 8573669-8 (Version None)
Quarter: 2012Q2

REPORT INFORMATION
  Report Type: 
  Country: None (occurrence: None)
  Receive Date: 20120423
  Receipt Date: 20100427
  Transmission Date: 20120825
  Serious: Yes (Hospitalization)
  Sender: FDA-Public Use
  Company Number: PHHY2010US27199

PATIENT
  Age: 55 Year
  Sex: Male

DRUGS (22)
  1. ACYCLOVIR [Concomitant]
  2. KEPPRA [Concomitant]
  3. LACOSAMIDE [Concomitant]
  4. POSACONAZOLE [Concomitant]
  5. EXJADE [Suspect]
     Indication: IRON OVERLOAD
     Dosage: 1500 MG, QD, ORAL
     Route: 048
     Dates: start: 20100208, end: 20100212
  6. MULTIVITAMINS (ASCORBIC ACID, ERGOCALCIFEROL, FOLIC ACID, NICOTINAMIDE [Concomitant]
  7. PROGRAF [Concomitant]
  8. XANAX [Concomitant]
  9. JUVEN [Concomitant]
  10. THORAZINE [Concomitant]
  11. CELLCEPT [Concomitant]
  12. CLARITIN [Concomitant]
  13. DILAUDID [Concomitant]
  14. LEVAQUIN [Concomitant]
  15. AMBIEN [Concomitant]
  16. PREDNISONE TAB [Concomitant]
  17. PROTONIX [Concomitant]
  18. ATARAX [Concomitant]
  19. METHADONE HYDROCHLORIDE [Concomitant]
  20. TRIAMCINOLONE [Concomitant]
  21. LOMOTIL [Concomitant]
  22. IMODIUM [Concomitant]

REACTIONS (2)
  - ABDOMINAL PAIN [None]
  - DIARRHOEA [None]
